FAERS Safety Report 24319086 (Version 3)
Quarter: 2024Q3

REPORT INFORMATION
  Report Type: Report from Study
  Country: US (occurrence: US)
  Receive Date: 20240913
  Receipt Date: 20240925
  Transmission Date: 20241017
  Serious: Yes (Other)
  Sender: ABBVIE
  Company Number: US-ABBVIE-5880117

PATIENT
  Age: 76 Year
  Sex: Female
  Weight: 68.946 kg

DRUGS (4)
  1. CREON [Suspect]
     Active Substance: PANCRELIPASE AMYLASE\PANCRELIPASE LIPASE\PANCRELIPASE PROTEASE
     Indication: Pancreatic failure
     Dosage: FREQUENCY TEXT: 2 CAP PER MEALS?DAILY DOSE: 6 CAPSULES?FORM STRENGTH: 12000 UNIT
     Route: 048
     Dates: start: 19890701
  2. ATORVASTATIN [Concomitant]
     Active Substance: ATORVASTATIN
     Indication: Blood triglycerides increased
  3. FISH OIL [Concomitant]
     Active Substance: FISH OIL
     Indication: Product used for unknown indication
  4. LOSARTAN [Concomitant]
     Active Substance: LOSARTAN\LOSARTAN POTASSIUM
     Indication: Hypertension

REACTIONS (12)
  - Bile duct stone [Recovered/Resolved]
  - Diverticulitis [Recovered/Resolved]
  - Bile duct stone [Recovering/Resolving]
  - Pain [Recovering/Resolving]
  - Diabetes mellitus [Not Recovered/Not Resolved]
  - Cholelithiasis [Recovered/Resolved]
  - Pain [Recovering/Resolving]
  - Biliary tract disorder [Recovered/Resolved]
  - Hepatic lesion [Not Recovered/Not Resolved]
  - Adhesion [Recovered/Resolved]
  - Hepatic lesion [Not Recovered/Not Resolved]
  - Pancreatic disorder [Unknown]

NARRATIVE: CASE EVENT DATE: 20191201
